FAERS Safety Report 19205778 (Version 1)
Quarter: 2021Q2

REPORT INFORMATION
  Report Type: Spontaneous
  Country: US (occurrence: US)
  Receive Date: 20210503
  Receipt Date: 20210503
  Transmission Date: 20210717
  Serious: No
  Sender: FDA-Public Use
  Company Number: US-FARMAPROD-202103-0292

PATIENT
  Sex: Female
  Weight: 61.74 kg

DRUGS (13)
  1. OXERVATE [Suspect]
     Active Substance: CENEGERMIN-BKBJ
     Indication: NEUROTROPHIC KERATOPATHY
     Route: 047
     Dates: start: 20210210
  2. CALCIUM ACETATE. [Concomitant]
     Active Substance: CALCIUM ACETATE
  3. ROSUVASTATIN CALCIUM. [Concomitant]
     Active Substance: ROSUVASTATIN CALCIUM
  4. LIDOCAINE. [Concomitant]
     Active Substance: LIDOCAINE
     Dosage: ADHESIVE PATCH
  5. METHOCARBAMOL. [Concomitant]
     Active Substance: METHOCARBAMOL
  6. TYLENOL [Concomitant]
     Active Substance: ACETAMINOPHEN
  7. CLOTRIMAZOLE. [Concomitant]
     Active Substance: CLOTRIMAZOLE
     Dosage: 3%?2% CREAM APPLICATOR
  8. MIDODRINE HCL [Concomitant]
     Active Substance: MIDODRINE HYDROCHLORIDE
  9. ASCORBIC ACID. [Concomitant]
     Active Substance: ASCORBIC ACID
  10. CLONIDINE. [Concomitant]
     Active Substance: CLONIDINE
     Dosage: 0.1 MG/24H PATCH
  11. HYDROCODONE/ACETAMINOPHEN [Concomitant]
     Active Substance: ACETAMINOPHEN\HYDROCODONE
  12. CLARITIN [Concomitant]
     Active Substance: LORATADINE
  13. MIRALAX [Concomitant]
     Active Substance: POLYETHYLENE GLYCOL 3350
     Dosage: DOSE PACK

REACTIONS (2)
  - Eyelid pain [Unknown]
  - Eye pain [Unknown]
